FAERS Safety Report 12477553 (Version 1)
Quarter: 2016Q2

REPORT INFORMATION
  Report Type: Spontaneous
  Country: NL (occurrence: NL)
  Receive Date: 20160617
  Receipt Date: 20160617
  Transmission Date: 20160815
  Serious: Yes (Other)
  Sender: FDA-Public Use
  Company Number: PHHY2016NL083099

PATIENT
  Age: 39 Year
  Sex: Male

DRUGS (2)
  1. PAROXETINE HYDROCHLORIDE. [Suspect]
     Active Substance: PAROXETINE HYDROCHLORIDE
     Indication: SCHIZOPHRENIA
     Dosage: 20 MG, QD
     Route: 065
  2. ZUCLOPENTHIXOL [Suspect]
     Active Substance: ZUCLOPENTHIXOL
     Indication: SCHIZOPHRENIA
     Dosage: 6 MG, QD
     Route: 065

REACTIONS (5)
  - Dyskinesia [Recovering/Resolving]
  - Muscular weakness [Recovering/Resolving]
  - Hypertonia [Recovering/Resolving]
  - Hyperreflexia [Recovering/Resolving]
  - Facial asymmetry [Recovering/Resolving]
